FAERS Safety Report 6314749-7 (Version None)
Quarter: 2009Q3

REPORT INFORMATION
  Report Type: 
  Country: None (occurrence: None)
  Receive Date: 20090819
  Receipt Date: 20090807
  Transmission Date: 20100115
  Serious: Yes (Hospitalization)
  Sender: FDA-Public Use
  Company Number: US-CELGENEUS-163-21880-09070518

PATIENT
  Sex: Female
  Weight: 75.364 kg

DRUGS (17)
  1. REVLIMID [Suspect]
     Indication: MULTIPLE MYELOMA
     Route: 048
     Dates: start: 20090401
  2. DECADRON [Concomitant]
     Indication: MULTIPLE MYELOMA
     Route: 065
  3. VELCADE [Concomitant]
     Indication: MULTIPLE MYELOMA
     Route: 065
  4. ASPIRIN [Concomitant]
     Indication: DRUG USE FOR UNKNOWN INDICATION
     Route: 065
  5. ATIVAN [Concomitant]
     Indication: DRUG USE FOR UNKNOWN INDICATION
     Route: 065
  6. COMPAZINE [Concomitant]
     Indication: DRUG USE FOR UNKNOWN INDICATION
     Route: 065
  7. COUMADIN [Concomitant]
     Indication: DRUG USE FOR UNKNOWN INDICATION
     Route: 048
  8. COUMADIN [Concomitant]
     Route: 048
  9. NAPROXEN [Concomitant]
     Indication: DRUG USE FOR UNKNOWN INDICATION
     Route: 065
  10. PRILOSEC [Concomitant]
     Indication: DRUG USE FOR UNKNOWN INDICATION
     Route: 065
  11. TRIAM/HYDROCHLOROTHIAZIDE [Concomitant]
     Indication: DRUG USE FOR UNKNOWN INDICATION
     Dosage: 37.5/25 MG
     Route: 065
  12. ACYCLOVIR [Concomitant]
     Route: 065
  13. NEUPOGEN [Concomitant]
     Indication: DRUG USE FOR UNKNOWN INDICATION
     Route: 065
  14. RED BLOOD CELLS [Concomitant]
     Dosage: 2 UNITS
     Route: 051
  15. LOPRESSOR [Concomitant]
     Indication: DRUG USE FOR UNKNOWN INDICATION
     Route: 065
  16. IRON SULFATETHIAMIN COMPOUND TAB [Concomitant]
     Route: 065
  17. INSULIN [Concomitant]
     Route: 065

REACTIONS (6)
  - ACUTE RESPIRATORY DISTRESS SYNDROME [None]
  - HYPERGLYCAEMIA [None]
  - INFLUENZA [None]
  - PANCYTOPENIA [None]
  - PNEUMONIA [None]
  - SEPSIS [None]
